FAERS Safety Report 7268353-7 (Version None)
Quarter: 2011Q1

REPORT INFORMATION
  Report Type: 
  Country: None (occurrence: None)
  Receive Date: 20110201
  Receipt Date: 20110126
  Transmission Date: 20110831
  Serious: Yes (Death)
  Sender: FDA-Public Use
  Company Number: US-GENENTECH-310597

PATIENT
  Sex: Female
  Weight: 96 kg

DRUGS (2)
  1. OXYGEN [Concomitant]
     Indication: INTERSTITIAL LUNG DISEASE
  2. RITUXIMAB [Suspect]
     Indication: RHEUMATOID ARTHRITIS
     Dosage: 1000 MG, UNK
     Route: 042
     Dates: start: 20070301, end: 20100830

REACTIONS (1)
  - PNEUMONIA [None]
